FAERS Safety Report 7977398 (Version 8)
Quarter: 2013Q1

REPORT INFORMATION
  Report Type: Spontaneous
  Country: US (occurrence: US)
  Receive Date: 20110607
  Receipt Date: 20130207
  Transmission Date: 20140127
  Serious: Yes (Hospitalization, Other)
  Sender: FDA-Public Use
  Company Number: US-ASTRAZENECA-2010SE38872

PATIENT
  Age: 81 Year
  Sex: Female

DRUGS (8)
  1. NEXIUM [Suspect]
     Route: 048
  2. NEXIUM [Suspect]
     Route: 048
  3. PRILOSEC [Suspect]
     Route: 048
  4. PRILOSEC OTC [Suspect]
     Route: 048
  5. PROTONIX [Suspect]
     Route: 065
  6. KLOR-CON [Concomitant]
  7. GABAPENTIN [Concomitant]
  8. BALTREX [Concomitant]

REACTIONS (15)
  - Herpes zoster [Unknown]
  - Herpes ophthalmic [Unknown]
  - Gastrooesophageal reflux disease [Unknown]
  - Abdominal hernia [Unknown]
  - Barrett^s oesophagus [Unknown]
  - Sleep disorder due to general medical condition, insomnia type [Unknown]
  - Staphylococcal infection [Unknown]
  - Eye pruritus [Unknown]
  - Feeling abnormal [Unknown]
  - Stress [Unknown]
  - Contusion [Unknown]
  - Nausea [Unknown]
  - Drug ineffective [Unknown]
  - Off label use [Unknown]
  - Drug dose omission [Unknown]
